FAERS Safety Report 4448297-6 (Version None)
Quarter: 2004Q3

REPORT INFORMATION
  Report Type: 
  Country: None (occurrence: None)
  Receive Date: 20040910
  Receipt Date: 20040907
  Transmission Date: 20050211
  Serious: Yes (Other)
  Sender: FDA-Public Use
  Company Number: 002625

PATIENT
  Age: 57 Year
  Sex: Female

DRUGS (5)
  1. MEDROXYPROGESTERONE ACETATE [Suspect]
     Dates: start: 19980301, end: 20001001
  2. ESTRADERM [Suspect]
     Dates: start: 19990701, end: 19990901
  3. PREMARIN [Suspect]
     Dates: start: 19980301, end: 20001001
  4. PROVERA [Suspect]
     Dates: start: 19980301, end: 20001001
  5. MEDROXYPROGESTERONE ACETATE [Suspect]
     Dates: start: 20001001, end: 20010201

REACTIONS (1)
  - BREAST CANCER [None]
